FAERS Safety Report 5140207-1 (Version None)
Quarter: 2006Q4

REPORT INFORMATION
  Report Type: 
  Country: None (occurrence: None)
  Receive Date: 20061026
  Receipt Date: 20061026
  Transmission Date: 20070319
  Serious: Yes (Other)
  Sender: FDA-Public Use
  Company Number: None

PATIENT
  Sex: Female
  Weight: 74.8435 kg

DRUGS (3)
  1. CARDIOLITE [Suspect]
     Indication: CHEST DISCOMFORT
     Dosage: SEE IMAGE
     Route: 042
     Dates: start: 20061016
  2. CARDIOLITE [Suspect]
     Indication: CHEST DISCOMFORT
     Dosage: SEE IMAGE
     Route: 042
     Dates: start: 20061016
  3. CARDIOLITE [Suspect]

REACTIONS (3)
  - PARAESTHESIA [None]
  - POST PROCEDURAL COMPLICATION [None]
  - VISION BLURRED [None]
